FAERS Safety Report 10345535 (Version 4)
Quarter: 2015Q3

REPORT INFORMATION
  Report Type: Report from Study
  Country: DE (occurrence: DE)
  Receive Date: 20140728
  Receipt Date: 20150820
  Transmission Date: 20151125
  Serious: Yes (Hospitalization)
  Sender: FDA-Public Use
  Company Number: DE-ASTELLAS-2014US008898

PATIENT
  Age: 18 Year
  Sex: Male

DRUGS (2)
  1. TACROLIMUS. [Suspect]
     Active Substance: TACROLIMUS
     Dosage: UNK, UNKNOWN FREQ.
     Route: 065
     Dates: start: 20060117
  2. TACROLIMUS. [Suspect]
     Active Substance: TACROLIMUS
     Indication: DERMATITIS ATOPIC
     Dosage: 0.03 %, ONCE DAILY
     Route: 061
     Dates: start: 20110223

REACTIONS (2)
  - Tendon sheath lesion excision [Unknown]
  - Abscess soft tissue [Recovered/Resolved]

NARRATIVE: CASE EVENT DATE: 20140130
